FAERS Safety Report 5957103-X (Version None)
Quarter: 2008Q4

REPORT INFORMATION
  Report Type: 
  Country: None (occurrence: None)
  Receive Date: 20081118
  Receipt Date: 20081114
  Transmission Date: 20090506
  Serious: Yes (Life-Threatening, Hospitalization)
  Sender: FDA-Public Use
  Company Number: PHHY2008PH28189

PATIENT
  Age: 27 Year
  Sex: Male

DRUGS (7)
  1. LEPONEX [Suspect]
     Indication: SCHIZOPHRENIA
     Dosage: 25 MG / DAY
     Dates: start: 20080811
  2. LEPONEX [Suspect]
     Dosage: 100 MG, 1/2 TAB BID
     Dates: end: 20080819
  3. LEPONEX [Suspect]
     Dosage: 100 MG, 1/2-1 TAB BID
     Dates: start: 20080819, end: 20081004
  4. LEPONEX [Suspect]
     Dosage: 100 MG 1TAB-1 1/2 TAB BID
     Dates: start: 20081004, end: 20081108
  5. SERENACE [Concomitant]
     Dosage: 20 MG 1/4 TAB OD
  6. ADALAT [Concomitant]
     Dosage: 30 MG, QD
  7. OLANZAPINE [Suspect]
     Dosage: 10 MG, TID

REACTIONS (8)
  - AGRANULOCYTOSIS [None]
  - COUGH [None]
  - EOSINOPHIL COUNT DECREASED [None]
  - LYMPHOCYTE COUNT DECREASED [None]
  - NASOPHARYNGITIS [None]
  - NEUTROPHIL COUNT DECREASED [None]
  - PYREXIA [None]
  - WHITE BLOOD CELL COUNT DECREASED [None]
